FAERS Safety Report 9580273 (Version 2)
Quarter: 2013Q4

REPORT INFORMATION
  Report Type: Spontaneous
  Country: US (occurrence: US)
  Receive Date: 20131002
  Receipt Date: 20131018
  Transmission Date: 20140711
  Serious: No
  Sender: FDA-Public Use
  Company Number: US-009507513-1310USA000957

PATIENT
  Age: 65 Year
  Sex: Male

DRUGS (1)
  1. PEGINTRON [Suspect]
     Indication: HEPATITIS C
     Dosage: 120 MICROGRAM, QW
     Route: 058
     Dates: start: 20130920

REACTIONS (5)
  - Chills [Unknown]
  - Influenza like illness [Unknown]
  - Decreased appetite [Unknown]
  - Fatigue [Unknown]
  - Product quality issue [Unknown]
